FAERS Safety Report 6077523-5 (Version None)
Quarter: 2009Q1

REPORT INFORMATION
  Report Type: 
  Country: None (occurrence: None)
  Receive Date: 20090213
  Receipt Date: 20090205
  Transmission Date: 20090719
  Serious: Yes (Hospitalization)
  Sender: FDA-Public Use
  Company Number: JP-JNJFOC-20090103809

PATIENT
  Sex: Male
  Weight: 50 kg

DRUGS (38)
  1. REMICADE [Suspect]
     Route: 042
  2. REMICADE [Suspect]
     Route: 042
  3. REMICADE [Suspect]
     Route: 042
  4. REMICADE [Suspect]
     Route: 042
  5. REMICADE [Suspect]
     Route: 042
  6. REMICADE [Suspect]
     Route: 042
  7. REMICADE [Suspect]
     Route: 042
  8. REMICADE [Suspect]
     Route: 042
  9. REMICADE [Suspect]
     Route: 042
  10. REMICADE [Suspect]
     Route: 042
  11. REMICADE [Suspect]
     Route: 042
  12. REMICADE [Suspect]
     Route: 042
  13. REMICADE [Suspect]
     Route: 042
  14. REMICADE [Suspect]
     Route: 042
  15. REMICADE [Suspect]
     Route: 042
  16. REMICADE [Suspect]
     Route: 042
  17. REMICADE [Suspect]
     Route: 042
  18. REMICADE [Suspect]
     Route: 042
  19. REMICADE [Suspect]
     Route: 042
  20. REMICADE [Suspect]
     Route: 042
  21. REMICADE [Suspect]
     Route: 042
  22. REMICADE [Suspect]
     Route: 042
  23. REMICADE [Suspect]
     Route: 042
  24. REMICADE [Suspect]
     Route: 042
  25. REMICADE [Suspect]
     Route: 042
  26. REMICADE [Suspect]
     Route: 042
  27. REMICADE [Suspect]
     Route: 042
  28. REMICADE [Suspect]
     Route: 042
  29. REMICADE [Suspect]
     Route: 042
  30. REMICADE [Suspect]
     Route: 042
  31. REMICADE [Suspect]
     Route: 042
  32. REMICADE [Suspect]
     Route: 042
  33. REMICADE [Suspect]
     Indication: CROHN'S DISEASE
     Route: 042
  34. IMURAN [Concomitant]
     Indication: CROHN'S DISEASE
     Route: 048
  35. PENTASA [Concomitant]
     Indication: CROHN'S DISEASE
     Route: 048
  36. FLAGYL [Concomitant]
     Route: 048
  37. ELENTAL [Concomitant]
     Indication: CROHN'S DISEASE
     Route: 048
  38. FERROMIA [Concomitant]
     Indication: IRON DEFICIENCY ANAEMIA
     Route: 048

REACTIONS (1)
  - HEPATITIS B [None]
